FAERS Safety Report 22020297 (Version 1)
Quarter: 2023Q1

REPORT INFORMATION
  Report Type: Other
  Country: PH (occurrence: None)
  Receive Date: 20230222
  Receipt Date: 20230222
  Transmission Date: 20230417
  Serious: Yes (Hospitalization)
  Sender: FDA-Public Use
  Company Number: PH-ROCHE-3285950

PATIENT
  Age: 40 Year
  Sex: Female

DRUGS (5)
  1. BEVACIZUMAB [Suspect]
     Active Substance: BEVACIZUMAB
     Indication: COVID-19 pneumonia
     Route: 065
  2. MYCOPHENOLATE MOFETIL [Suspect]
     Active Substance: MYCOPHENOLATE MOFETIL
     Indication: Lupus nephritis
     Route: 065
  3. HYDROXYCHLOROQUINE [Suspect]
     Active Substance: HYDROXYCHLOROQUINE
     Indication: Lupus nephritis
     Route: 065
  4. METHYLPREDNISOLONE [Suspect]
     Active Substance: METHYLPREDNISOLONE
     Indication: Lupus nephritis
     Route: 065
  5. PREDNISONE [Suspect]
     Active Substance: PREDNISONE
     Indication: Lupus nephritis
     Dosage: 40MG/DAY
     Route: 065

REACTIONS (2)
  - COVID-19 pneumonia [Recovered/Resolved]
  - Off label use [Unknown]
